FAERS Safety Report 13256204 (Version 1)
Quarter: 2017Q1

REPORT INFORMATION
  Report Type: Spontaneous
  Country: US (occurrence: US)
  Receive Date: 20170220
  Receipt Date: 20170220
  Transmission Date: 20170428
  Serious: Yes (Hospitalization)
  Sender: FDA-Public Use
  Company Number: None

PATIENT
  Age: 71 Year
  Sex: Male
  Weight: 73.2 kg

DRUGS (2)
  1. WARFARIN [Suspect]
     Active Substance: WARFARIN
  2. HEPARIN [Suspect]
     Active Substance: HEPARIN SODIUM
     Indication: CARDIAC OPERATION
     Dosage: UNITS ONCE IV
     Route: 042
     Dates: start: 20170118, end: 20170118

REACTIONS (4)
  - Anaemia [None]
  - Haemoptysis [None]
  - Haematoma [None]
  - Haematuria [None]

NARRATIVE: CASE EVENT DATE: 20170119
